FAERS Safety Report 4496948-2 (Version None)
Quarter: 2004Q4

REPORT INFORMATION
  Report Type: 
  Country: None (occurrence: None)
  Receive Date: 20041109
  Receipt Date: 20041104
  Transmission Date: 20050328
  Serious: Yes (Hospitalization)
  Sender: FDA-Public Use
  Company Number: CA-MERCK-0411CAN00068

PATIENT
  Age: 59 Year
  Sex: Male

DRUGS (4)
  1. VIOXX [Suspect]
     Indication: BACK PAIN
     Route: 048
     Dates: start: 20000101, end: 20010101
  2. RAMIPRIL [Concomitant]
     Route: 065
  3. MEVACOR [Concomitant]
     Route: 048
  4. CELECOXIB [Concomitant]
     Route: 065
     Dates: start: 20010101

REACTIONS (2)
  - MYOCARDIAL INFARCTION [None]
  - PULMONARY OEDEMA [None]
